FAERS Safety Report 4997201-0 (Version None)
Quarter: 2006Q2

REPORT INFORMATION
  Report Type: 
  Country: None (occurrence: None)
  Receive Date: 20060505
  Receipt Date: 20060505
  Transmission Date: 20061013
  Serious: Yes (Other)
  Sender: FDA-Public Use
  Company Number: None

PATIENT
  Sex: Female
  Weight: 127.0072 kg

DRUGS (2)
  1. CYMBALTA [Suspect]
     Indication: DIABETIC NEUROPATHY
     Dates: start: 20060215, end: 20060505
  2. CYMBALTA [Suspect]
     Indication: MAJOR DEPRESSION
     Dates: start: 20060215, end: 20060505

REACTIONS (2)
  - ANORGASMIA [None]
  - MYDRIASIS [None]
